FAERS Safety Report 5966849-9 (Version None)
Quarter: 2008Q4

REPORT INFORMATION
  Report Type: 
  Country: None (occurrence: None)
  Receive Date: 20081119
  Receipt Date: 20080822
  Transmission Date: 20090506
  Serious: No
  Sender: FDA-Public Use
  Company Number: WAES 0808USA04439

PATIENT
  Age: 67 Year
  Sex: Male

DRUGS (5)
  1. JANUVIA [Suspect]
     Indication: DIABETES MELLITUS
     Dosage: PO
     Route: 048
  2. ACTOS [Concomitant]
  3. ALTACE [Concomitant]
  4. LOPID [Concomitant]
  5. PLAVIX [Concomitant]

REACTIONS (1)
  - OEDEMA PERIPHERAL [None]
